FAERS Safety Report 4523181-8 (Version None)
Quarter: 2004Q4

REPORT INFORMATION
  Report Type: 
  Country: None (occurrence: None)
  Receive Date: 20041210
  Receipt Date: 20040930
  Transmission Date: 20050328
  Serious: Yes (Death, Other)
  Sender: FDA-Public Use
  Company Number: US-AMGEN-US094089

PATIENT
  Sex: Male
  Weight: 74.9 kg

DRUGS (7)
  1. PROCRIT [Suspect]
     Indication: MYELODYSPLASTIC SYNDROME
     Route: 058
     Dates: start: 20030428, end: 20040927
  2. BLOOD CELLS, PACKED HUMAN [Concomitant]
  3. FOSAMAX [Concomitant]
  4. K-LOR [Concomitant]
  5. ALLOPURINOL [Concomitant]
  6. TOPROL-XL [Concomitant]
  7. ALTACE [Concomitant]

REACTIONS (9)
  - APLASIA PURE RED CELL [None]
  - BONE MARROW DISORDER [None]
  - DEATH [None]
  - MONOCYTOSIS [None]
  - MYELOFIBROSIS [None]
  - NEUTROPENIA [None]
  - NORMOCHROMIC NORMOCYTIC ANAEMIA [None]
  - THERAPEUTIC RESPONSE DECREASED [None]
  - THROMBOCYTOPENIA [None]
